FAERS Safety Report 9785171 (Version 2)
Quarter: 2014Q1

REPORT INFORMATION
  Report Type: Spontaneous
  Country: US (occurrence: US)
  Receive Date: 20131227
  Receipt Date: 20140108
  Transmission Date: 20141002
  Serious: Yes (Hospitalization)
  Sender: FDA-Public Use
  Company Number: US-JNJFOC-20131212163

PATIENT
  Age: 78 Year
  Sex: Male
  Weight: 74.39 kg

DRUGS (13)
  1. XARELTO [Suspect]
     Indication: THROMBOSIS PROPHYLAXIS
     Route: 048
     Dates: start: 20131215
  2. XARELTO [Suspect]
     Indication: THROMBOSIS PROPHYLAXIS
     Dosage: STRENGTH: 10 MG
     Route: 048
     Dates: start: 20131210, end: 20131213
  3. XARELTO [Suspect]
     Indication: KNEE ARTHROPLASTY
     Route: 048
     Dates: start: 20131215
  4. XARELTO [Suspect]
     Indication: KNEE ARTHROPLASTY
     Dosage: STRENGTH: 10 MG
     Route: 048
     Dates: start: 20131210, end: 20131213
  5. XARELTO [Suspect]
     Indication: PULMONARY EMBOLISM
     Dosage: STRENGTH: 10 MG
     Route: 048
     Dates: start: 20131210, end: 20131213
  6. XARELTO [Suspect]
     Indication: PULMONARY EMBOLISM
     Route: 048
     Dates: start: 20131215
  7. FINASTERIDE [Concomitant]
     Indication: PROSTATIC DISORDER
     Route: 065
  8. SAW PALMETTO [Concomitant]
     Indication: PROSTATIC DISORDER
     Route: 065
  9. HCTZ [Concomitant]
     Indication: HYPERTENSION
     Route: 048
  10. VITAMIN C [Concomitant]
     Indication: NUTRITIONAL SUPPLEMENTATION
     Route: 048
  11. LEVOQUIN [Concomitant]
     Indication: NUTRITIONAL SUPPLEMENTATION
     Route: 048
     Dates: start: 20131212
  12. MULTIVITAMINES [Concomitant]
     Indication: NUTRITIONAL SUPPLEMENTATION
     Route: 048
  13. ROCEPHIN [Concomitant]
     Route: 065
     Dates: start: 20131215, end: 20131215

REACTIONS (6)
  - Deep vein thrombosis [Unknown]
  - Pulmonary embolism [Unknown]
  - Pneumonia [Unknown]
  - Drug dose omission [Recovered/Resolved]
  - Inappropriate schedule of drug administration [Unknown]
  - Feeling abnormal [Unknown]
